FAERS Safety Report 8065287-5 (Version None)
Quarter: 2012Q1

REPORT INFORMATION
  Report Type: 
  Country: None (occurrence: None)
  Receive Date: 20120111
  Receipt Date: 20111230
  Transmission Date: 20120608
  Serious: Yes (Other)
  Sender: FDA-Public Use
  Company Number: AECAN201100354

PATIENT
  Age: 19 Year
  Sex: Female

DRUGS (2)
  1. HYDROXYCHLOROQUINE SULFATE [Suspect]
     Indication: ANGIOEDEMA
  2. IMMUNE GLOBULIN INTRAVENOUS (HUMAN) [Suspect]
     Indication: ANGIOEDEMA
     Dosage: IV
     Route: 042
     Dates: start: 20100328

REACTIONS (4)
  - CONVULSION [None]
  - ADVERSE EVENT [None]
  - INFUSION RELATED REACTION [None]
  - POSTERIOR REVERSIBLE ENCEPHALOPATHY SYNDROME [None]
